FAERS Safety Report 7014377-4 (Version None)
Quarter: 2010Q3

REPORT INFORMATION
  Report Type: 
  Country: None (occurrence: None)
  Receive Date: 20100924
  Receipt Date: 20100924
  Transmission Date: 20110219
  Serious: No
  Sender: FDA-Public Use
  Company Number: None

PATIENT
  Sex: Female
  Weight: 100.2 kg

DRUGS (2)
  1. CARBOPLATIN [Suspect]
     Dosage: 591 MG
  2. TAXOL [Suspect]
     Dosage: 341 MG

REACTIONS (1)
  - NEUTROPENIA [None]
